FAERS Safety Report 9861172 (Version 1)
Quarter: 2014Q1

REPORT INFORMATION
  Report Type: Spontaneous
  Country: NL (occurrence: None)
  Receive Date: 20140130
  Receipt Date: 20140130
  Transmission Date: 20141002
  Serious: Yes (Other)
  Sender: FDA-Public Use
  Company Number: CLINIGEN-003067

PATIENT
  Sex: Female

DRUGS (4)
  1. FOSCAVIR [Suspect]
     Indication: PRODUCT USED FOR UNKNOWN INDICATION
  2. CYTOMEGALIA IG (ALL OTHER THERAPEUTIC PRODUCTS) [Concomitant]
  3. GANCICLOVIR [Concomitant]
  4. VALGANCICLOVIR [Concomitant]

REACTIONS (3)
  - Drug resistance [None]
  - Cytomegalovirus gastrointestinal infection [None]
  - Cytomegalovirus viraemia [None]
